FAERS Safety Report 11264618 (Version 1)
Quarter: 2015Q3

REPORT INFORMATION
  Report Type: Spontaneous
  Country: IT (occurrence: IT)
  Receive Date: 20150713
  Receipt Date: 20150713
  Transmission Date: 20151125
  Serious: Yes (Other)
  Sender: FDA-Public Use
  Company Number: IT-TEVA-577031ACC

PATIENT
  Age: 71 Year
  Sex: Female
  Weight: 42 kg

DRUGS (6)
  1. ZALTRAP [Suspect]
     Active Substance: ZIV-AFLIBERCEPT
     Indication: COLON CANCER
     Dosage: 200 MG CYCLICAL; CONCENTRATE FOR SOLUTION FOR INFUSION
     Route: 042
     Dates: start: 20150302, end: 20150706
  2. GRANISETRON KABI - 1MG/ML CONCENTRATO PER SOLUZIONE INIETTABILE/INFUSI [Concomitant]
     Active Substance: GRANISETRON
     Indication: PRODUCT USED FOR UNKNOWN INDICATION
     Dosage: 1 MG; CONCENTRATE FOR SOLUTION FOR INJECTION/INFUSION
     Route: 042
     Dates: start: 20150302, end: 20150706
  3. ZANTAC - 50 MG/5 ML SOLUZIONE INIETTABILE [Concomitant]
     Indication: PRODUCT USED FOR UNKNOWN INDICATION
     Dosage: 50 MG
     Route: 042
     Dates: start: 20150302, end: 20150706
  4. IRINOTECAN KABI - 20 MG/ML CONCENTRATO PER SOLUZIONE PER INFUSIONE - F [Suspect]
     Active Substance: IRINOTECAN
     Indication: COLON CANCER
     Dosage: 180 MG CYCLICAL; CONCENTRATE FOR SOLUTION FOR INFUSION
     Route: 042
     Dates: start: 20150302, end: 20150706
  5. SOLDESAM - 4 MG/ML SOLUZIONE INIETTABILE [Concomitant]
     Active Substance: DEXAMETHASONE
     Indication: PRODUCT USED FOR UNKNOWN INDICATION
     Dosage: 8 MG
     Route: 042
     Dates: start: 20150302, end: 20150706
  6. FLUOROURACILE TEVA - 1 G/20 ML SOLUZIONE PER INFUSIONE - TEVA ITALIA S [Suspect]
     Active Substance: FLUOROURACIL
     Indication: COLON CANCER
     Dosage: 400 MG CYCLICAL
     Route: 042
     Dates: start: 20150302, end: 20150706

REACTIONS (1)
  - Ischaemia [Recovering/Resolving]

NARRATIVE: CASE EVENT DATE: 20150511
